FAERS Safety Report 5051630-8 (Version None)
Quarter: 2006Q3

REPORT INFORMATION
  Report Type: 
  Country: None (occurrence: None)
  Receive Date: 20060714
  Receipt Date: 20060711
  Transmission Date: 20061208
  Serious: Yes (Hospitalization)
  Sender: FDA-Public Use
  Company Number: 447

PATIENT
  Age: 75 Year
  Sex: Female
  Weight: 87 kg

DRUGS (2)
  1. FLOLAN [Suspect]
     Indication: HYPERTENSION
     Route: 042
     Dates: start: 20060630, end: 20060630
  2. LASIX [Concomitant]

REACTIONS (3)
  - HYPOTENSION [None]
  - OXYGEN SATURATION DECREASED [None]
  - PULMONARY OEDEMA [None]
